FAERS Safety Report 5692072-1 (Version None)
Quarter: 2008Q2

REPORT INFORMATION
  Report Type: 
  Country: None (occurrence: None)
  Receive Date: 20080402
  Receipt Date: 20080318
  Transmission Date: 20081010
  Serious: Yes (Hospitalization)
  Sender: FDA-Public Use
  Company Number: FR-GENENTECH-258252

PATIENT
  Sex: Female

DRUGS (7)
  1. AVASTIN [Suspect]
     Indication: COLON CANCER METASTATIC
     Dosage: 5 MG/KG, UNK
     Route: 042
     Dates: start: 20070926
  2. OXALIPLATIN [Concomitant]
     Indication: COLON CANCER METASTATIC
     Dates: start: 20070516
  3. FLUOROURACIL [Concomitant]
     Indication: COLON CANCER METASTATIC
     Dosage: UNK, UNK
     Dates: start: 20070516
  4. CALCIUM LEVOFOLINATE [Concomitant]
     Indication: COLON CANCER METASTATIC
     Dates: start: 20070516
  5. LEXOMIL [Concomitant]
     Indication: DRUG USE FOR UNKNOWN INDICATION
  6. ZOPHREN [Concomitant]
  7. IRINOTECAN HCL [Concomitant]
     Indication: COLON CANCER METASTATIC
     Dosage: UNK, UNK
     Dates: start: 20071108

REACTIONS (1)
  - OESOPHAGEAL VARICES HAEMORRHAGE [None]
